FAERS Safety Report 4502246-0 (Version None)
Quarter: 2004Q4

REPORT INFORMATION
  Report Type: 
  Country: None (occurrence: None)
  Receive Date: 20041116
  Receipt Date: 20041101
  Transmission Date: 20050328
  Serious: Yes (Other)
  Sender: FDA-Public Use
  Company Number: JP-JNJFOC-20041003536

PATIENT
  Age: 43 Year
  Sex: Male

DRUGS (2)
  1. OFLOXACIN [Suspect]
     Indication: UPPER RESPIRATORY TRACT INFECTION
     Route: 049
  2. VENLAFAXINE [Concomitant]

REACTIONS (1)
  - DYSKINESIA [None]
